FAERS Safety Report 4768084-9 (Version None)
Quarter: 2005Q3

REPORT INFORMATION
  Report Type: 
  Country: None (occurrence: None)
  Receive Date: 20050912
  Receipt Date: 20050912
  Transmission Date: 20060218
  Serious: Yes (Death, Hospitalization, Other)
  Sender: FDA-Public Use
  Company Number: None

PATIENT
  Age: 78 Year
  Sex: Female

DRUGS (8)
  1. CORRECTOL [Suspect]
     Indication: CONSTIPATION
     Dosage: ORAL
     Dates: start: 19900101, end: 19960101
  2. EX-LAX ORALS [Suspect]
     Indication: CONSTIPATION
     Dosage: 2-3 X/WEEK ORAL
     Route: 048
     Dates: start: 19900101, end: 19960101
  3. DULCOLAX [Suspect]
     Indication: CONSTIPATION
     Dosage: 2-3X/WEEK
     Dates: start: 19960501, end: 19961201
  4. MILK OF MAGNESIA TAB [Suspect]
     Indication: CONSTIPATION
     Dosage: 2-3X/WEEK
     Dates: start: 19900101, end: 19960101
  5. FEEN-A-MINT ORALS [Suspect]
     Indication: CONSTIPATION
     Dosage: ORAL
     Route: 048
     Dates: start: 19930101, end: 20000101
  6. INSULIN [Concomitant]
  7. HYDRALAZINE [Concomitant]
  8. CAPOTEN [Concomitant]

REACTIONS (7)
  - CONDITION AGGRAVATED [None]
  - CONSTIPATION [None]
  - DYSPEPSIA [None]
  - INTESTINAL OBSTRUCTION [None]
  - NAUSEA [None]
  - URINARY TRACT INFECTION [None]
  - VOLVULUS OF BOWEL [None]
